FAERS Safety Report 25068181 (Version 3)
Quarter: 2025Q2

REPORT INFORMATION
  Report Type: Spontaneous
  Country: US (occurrence: US)
  Receive Date: 20250312
  Receipt Date: 20250409
  Transmission Date: 20250717
  Serious: No
  Sender: PFIZER
  Company Number: US-PFIZER INC-202500054008

PATIENT
  Age: 15 Month
  Sex: Male
  Weight: 11.34 kg

DRUGS (1)
  1. EUCRISA [Suspect]
     Active Substance: CRISABOROLE
     Indication: Eczema
     Dosage: UNK, 2X/DAY
     Dates: start: 20250224, end: 202503

REACTIONS (1)
  - Eczema [Unknown]
